FAERS Safety Report 4805920-1 (Version None)
Quarter: 2005Q4

REPORT INFORMATION
  Report Type: 
  Country: None (occurrence: None)
  Receive Date: 20051018
  Receipt Date: 20051007
  Transmission Date: 20060501
  Serious: Yes (Death, Hospitalization)
  Sender: FDA-Public Use
  Company Number: 2005-BP-17989RO

PATIENT
  Sex: Male

DRUGS (2)
  1. METHOTREXATE [Suspect]
     Indication: ARTHRITIS
     Dosage: 2.5 MG, 4 TIMES/WEEK (2.5 MG (METHOTREXATE)
     Route: 048
  2. FOLIC ACID [Suspect]
     Indication: PROPHYLAXIS

REACTIONS (3)
  - GENERAL PHYSICAL HEALTH DETERIORATION [None]
  - INFECTION [None]
  - STOMATITIS [None]
